FAERS Safety Report 8854616 (Version 1)
Quarter: 2012Q4

REPORT INFORMATION
  Report Type: 
  Country: LB (occurrence: LB)
  Receive Date: 20121023
  Receipt Date: 20121023
  Transmission Date: 20130627
  Serious: Yes (Hospitalization)
  Sender: FDA-Public Use
  Company Number: LB-SANOFI-AVENTIS-2012SA074791

PATIENT
  Age: 18 Year
  Sex: Female

DRUGS (3)
  1. PREDNISONE [Suspect]
     Indication: SYSTEMIC LUPUS ERYTHEMATOSUS
     Route: 065
  2. HYDROXYCHLOROQUINE [Suspect]
     Indication: SYSTEMIC LUPUS ERYTHEMATOSUS
     Route: 065
  3. METHOTREXATE [Suspect]
     Indication: SYSTEMIC LUPUS ERYTHEMATOSUS
     Route: 065

REACTIONS (11)
  - Arthritis bacterial [Recovered/Resolved]
  - Pain [Recovered/Resolved]
  - Tenderness [Recovered/Resolved]
  - Joint range of motion decreased [Recovered/Resolved]
  - Red blood cell sedimentation rate increased [Recovered/Resolved]
  - Abscess [Recovered/Resolved]
  - Salmonella bacteraemia [Recovered/Resolved]
  - Pyrexia [Recovered/Resolved]
  - Tachycardia [Recovered/Resolved]
  - Neutrophil count increased [Recovered/Resolved]
  - C-reactive protein increased [Recovered/Resolved]
